FAERS Safety Report 12835033 (Version 5)
Quarter: 2018Q1

REPORT INFORMATION
  Report Type: Spontaneous
  Country: US (occurrence: US)
  Receive Date: 20161010
  Receipt Date: 20180329
  Transmission Date: 20180508
  Serious: No
  Sender: FDA-Public Use
  Company Number: US-ASTRAZENECA-2016SF06246

PATIENT
  Age: 923 Month
  Sex: Female
  Weight: 68.9 kg

DRUGS (15)
  1. PULMICORT FLEXHALER [Suspect]
     Active Substance: BUDESONIDE
     Indication: DYSPNOEA
     Dosage: 90MCG 1 PUFF TWICE DAILY
     Route: 055
     Dates: start: 2013
  2. PULMICORT FLEXHALER [Suspect]
     Active Substance: BUDESONIDE
     Indication: CHRONIC OBSTRUCTIVE PULMONARY DISEASE
     Dosage: 90MCG 1 PUFF TWICE DAILY
     Route: 055
     Dates: start: 2015
  3. VITAMIN D3 [Concomitant]
     Active Substance: CHOLECALCIFEROL
     Route: 048
  4. PULMICORT FLEXHALER [Suspect]
     Active Substance: BUDESONIDE
     Indication: DYSPNOEA
     Route: 055
     Dates: start: 20160129
  5. VENTOLIN HFA [Concomitant]
     Active Substance: ALBUTEROL SULFATE
     Indication: DYSPNOEA
     Dates: start: 20160129
  6. PULMICORT FLEXHALER [Suspect]
     Active Substance: BUDESONIDE
     Indication: CHRONIC OBSTRUCTIVE PULMONARY DISEASE
     Route: 055
     Dates: start: 20160129
  7. HYDRALAZINE [Concomitant]
     Active Substance: HYDRALAZINE HYDROCHLORIDE
     Route: 048
  8. UNISOM SLEEPTABS [Concomitant]
     Active Substance: DOXYLAMINE SUCCINATE
     Route: 048
  9. LISINOPRIL. [Suspect]
     Active Substance: LISINOPRIL
     Route: 048
  10. PULMICORT FLEXHALER [Suspect]
     Active Substance: BUDESONIDE
     Indication: CHRONIC OBSTRUCTIVE PULMONARY DISEASE
     Dosage: 90MCG 1 PUFF TWICE DAILY
     Route: 055
     Dates: start: 2013
  11. METOPROLOL SUCCINATE HYDROCHLOROTHIAZIDE [Suspect]
     Active Substance: HYDROCHLOROTHIAZIDE\METOPROLOL SUCCINATE
     Dosage: ONE TABLET DAILY
     Route: 048
     Dates: start: 20160628
  12. ATORVASTATIN CALCIUM. [Concomitant]
     Active Substance: ATORVASTATIN CALCIUM
  13. DILTIAZEM CD [Concomitant]
     Active Substance: DILTIAZEM
  14. RECLAST [Concomitant]
     Active Substance: ZOLEDRONIC ACID
  15. PULMICORT FLEXHALER [Suspect]
     Active Substance: BUDESONIDE
     Indication: DYSPNOEA
     Dosage: 90MCG 1 PUFF TWICE DAILY
     Route: 055
     Dates: start: 2015

REACTIONS (15)
  - Contusion [Unknown]
  - Bronchospasm [Unknown]
  - Back pain [Unknown]
  - Chest discomfort [Unknown]
  - Intentional product misuse [Unknown]
  - Device issue [Unknown]
  - Drug dose omission [Recovered/Resolved]
  - Glaucoma [Unknown]
  - Fatigue [Unknown]
  - Rhinitis allergic [Unknown]
  - Urticaria [Unknown]
  - Off label use [Unknown]
  - Product use in unapproved indication [Unknown]
  - Head discomfort [Unknown]
  - Product use issue [Unknown]

NARRATIVE: CASE EVENT DATE: 201606
